FAERS Safety Report 16226779 (Version 2)
Quarter: 2019Q2

REPORT INFORMATION
  Report Type: Spontaneous
  Country: FR (occurrence: FR)
  Receive Date: 20190423
  Receipt Date: 20190531
  Transmission Date: 20190711
  Serious: Yes (Other)
  Sender: FDA-Public Use
  Company Number: FR-TEVA-2019-FR-1041242

PATIENT
  Age: 36 Year
  Sex: Female
  Weight: 56 kg

DRUGS (1)
  1. COPAXONE [Suspect]
     Active Substance: GLATIRAMER ACETATE
     Route: 065
     Dates: start: 2017

REACTIONS (10)
  - Hypothermia [Unknown]
  - Pyrexia [Unknown]
  - Somatic symptom disorder [Unknown]
  - Insomnia [Recovered/Resolved]
  - Depressed mood [Unknown]
  - Immune system disorder [Recovered/Resolved]
  - Fatigue [Unknown]
  - Asthenia [Unknown]
  - Weight decreased [Unknown]
  - Therapy change [Unknown]

NARRATIVE: CASE EVENT DATE: 201805
